FAERS Safety Report 8032375-9 (Version None)
Quarter: 2012Q1

REPORT INFORMATION
  Report Type: 
  Country: None (occurrence: None)
  Receive Date: 20120109
  Receipt Date: 20120109
  Transmission Date: 20120608
  Serious: Yes (Hospitalization)
  Sender: FDA-Public Use
  Company Number: None

PATIENT
  Sex: Female
  Weight: 58.4 kg

DRUGS (4)
  1. IFOSFAMIDE [Suspect]
     Dosage: 10800 MG
  2. DOXORUBICIN HCL [Suspect]
     Dosage: 88 MG
  3. MESNA [Suspect]
     Dosage: 2160 MG
  4. NEULASTA [Suspect]
     Dosage: 6 MG

REACTIONS (9)
  - HYPOTENSION [None]
  - HEPATIC FUNCTION ABNORMAL [None]
  - CAECITIS [None]
  - MENTAL STATUS CHANGES [None]
  - PULMONARY OEDEMA [None]
  - BLOOD CREATININE INCREASED [None]
  - ACUTE MYELOID LEUKAEMIA [None]
  - URINE OUTPUT DECREASED [None]
  - RESPIRATORY FAILURE [None]
